FAERS Safety Report 9324208 (Version 1)
Quarter: 2013Q2

REPORT INFORMATION
  Report Type: Spontaneous
  Country: BR (occurrence: BR)
  Receive Date: 20130603
  Receipt Date: 20130603
  Transmission Date: 20140414
  Serious: Yes (Hospitalization)
  Sender: FDA-Public Use
  Company Number: BR-ELI_LILLY_AND_COMPANY-BR201305009057

PATIENT
  Age: 60 Year
  Sex: Male

DRUGS (2)
  1. EFFIENT [Suspect]
     Dosage: 10 MG, QD
     Route: 048
     Dates: start: 201304, end: 20130506
  2. SPIRONOLACTONE [Concomitant]
     Dosage: UNKNOWN
     Route: 065

REACTIONS (2)
  - Cardiac failure [Not Recovered/Not Resolved]
  - Fluid retention [Not Recovered/Not Resolved]
